FAERS Safety Report 7905703-X (Version None)
Quarter: 2011Q4

REPORT INFORMATION
  Report Type: 
  Country: None (occurrence: None)
  Receive Date: 20111108
  Receipt Date: 20111024
  Transmission Date: 20120403
  Serious: Yes (Other)
  Sender: FDA-Public Use
  Company Number: 2011MA015508

PATIENT
  Age: 57 Year
  Sex: Female

DRUGS (2)
  1. DICLOFENAC SODIUM [Suspect]
     Indication: PRODUCT USED FOR UNKNOWN INDICATION
     Dates: end: 20100601
  2. IBUPROFEN [Suspect]
     Indication: PRODUCT USED FOR UNKNOWN INDICATION
     Dates: end: 20100601

REACTIONS (5)
  - HAEMOLYTIC ANAEMIA [None]
  - SEPSIS [None]
  - BACK PAIN [None]
  - RENAL FAILURE [None]
  - HEPATIC FAILURE [None]
